FAERS Safety Report 7581861-4 (Version None)
Quarter: 2011Q2

REPORT INFORMATION
  Report Type: 
  Country: None (occurrence: None)
  Receive Date: 20110629
  Receipt Date: 20101208
  Transmission Date: 20111010
  Serious: Yes (Other)
  Sender: FDA-Public Use
  Company Number: PHHY2010DE92247

PATIENT
  Age: 57 Year
  Sex: Female

DRUGS (4)
  1. MESALAZINE [Concomitant]
  2. AZATHIOPRINE [Concomitant]
  3. SUNITINIB MALATE [Concomitant]
  4. ZOLEDRONIC ACID [Suspect]
     Dosage: UNK UKN, UNK
     Route: 042

REACTIONS (2)
  - OSTEONECROSIS OF JAW [None]
  - MUCOSAL INFLAMMATION [None]
